FAERS Safety Report 9998991 (Version 1)
Quarter: 2014Q1

REPORT INFORMATION
  Report Type: Spontaneous
  Country: US (occurrence: None)
  Receive Date: 20140311
  Receipt Date: 20140311
  Transmission Date: 20141002
  Serious: Yes (Other)
  Sender: FDA-Public Use
  Company Number: None

PATIENT
  Age: 27 Week
  Sex: Female
  Weight: 5.9 kg

DRUGS (1)
  1. HYLAND^S TEETHING TABLETS [Suspect]
     Dosage: 2-3 TABLETS 4 TIMES PER DAY ?FOUR TIMES DAILY?TAKEN BY MOUTH
     Route: 048
     Dates: start: 20140307, end: 20140308

REACTIONS (8)
  - Crying [None]
  - Pyrexia [None]
  - Diet refusal [None]
  - Rash [None]
  - Vomiting [None]
  - Pain [None]
  - Screaming [None]
  - Loss of consciousness [None]
